FAERS Safety Report 4632993-1 (Version None)
Quarter: 2005Q2

REPORT INFORMATION
  Report Type: 
  Country: None (occurrence: None)
  Receive Date: 20050325
  Receipt Date: 20041229
  Transmission Date: 20051028
  Serious: No
  Sender: FDA-Public Use
  Company Number: USA031049004

PATIENT
  Age: 72 Year
  Sex: Female

DRUGS (1)
  1. FORTEO [Suspect]
     Dates: start: 20030321

REACTIONS (6)
  - AGITATION [None]
  - LOCALISED INFECTION [None]
  - MOVEMENT DISORDER [None]
  - SKIN LACERATION [None]
  - VISUAL ACUITY REDUCED [None]
  - WALKING AID USER [None]
